FAERS Safety Report 20756719 (Version 1)
Quarter: 2022Q2

REPORT INFORMATION
  Report Type: Spontaneous
  Country: IE (occurrence: IE)
  Receive Date: 20220427
  Receipt Date: 20220427
  Transmission Date: 20220721
  Serious: Yes (Hospitalization, Other)
  Sender: FDA-Public Use
  Company Number: IE-NOVARTISPH-NVSC2022IE058972

PATIENT
  Age: 83 Year
  Sex: Male

DRUGS (10)
  1. ROSUVASTATIN [Suspect]
     Active Substance: ROSUVASTATIN
     Indication: Carotid artery stenosis
     Dosage: 40 MG, QD
     Route: 048
     Dates: end: 20220120
  2. TAFAMIDIS [Suspect]
     Active Substance: TAFAMIDIS
     Indication: Amyloidosis
     Dosage: 61 MG, DAILY
     Route: 048
     Dates: start: 20211208, end: 20220128
  3. OMEPRAZOLE [Concomitant]
     Active Substance: OMEPRAZOLE
     Indication: Gastrooesophageal reflux prophylaxis
     Dosage: 40 MG, QD
     Route: 048
     Dates: start: 20190510
  4. METFORMIN [Concomitant]
     Active Substance: METFORMIN HYDROCHLORIDE
     Indication: Pulmonary fibrosis
     Dosage: 1000 MG, QD
     Route: 048
     Dates: start: 202104
  5. ASPIRIN [Concomitant]
     Active Substance: ASPIRIN
     Indication: Ischaemic cardiomyopathy
     Dosage: 75 MG, QD
     Route: 048
  6. SPIRONOLACTONE [Concomitant]
     Active Substance: SPIRONOLACTONE
     Indication: Ischaemic cardiomyopathy
     Dosage: 25 MG, QD
     Route: 048
     Dates: start: 20210321
  7. TAMSULOSIN [Concomitant]
     Active Substance: TAMSULOSIN
     Indication: Urine flow decreased
     Dosage: 400 UG, QD
     Route: 048
  8. FUROSEMIDE [Concomitant]
     Active Substance: FUROSEMIDE
     Indication: Ischaemic cardiomyopathy
     Dosage: 40 MG, QD
     Route: 048
  9. FUROSEMIDE [Concomitant]
     Active Substance: FUROSEMIDE
     Dosage: 80 MG, QD
     Route: 048
  10. ALLOPURINOL [Concomitant]
     Active Substance: ALLOPURINOL
     Indication: Prophylaxis
     Dosage: 300 MG, QD
     Route: 048

REACTIONS (2)
  - Rhabdomyolysis [Recovered/Resolved]
  - Acute kidney injury [Unknown]

NARRATIVE: CASE EVENT DATE: 20220128
